FAERS Safety Report 4427341-6 (Version None)
Quarter: 2004Q3

REPORT INFORMATION
  Report Type: 
  Country: None (occurrence: None)
  Receive Date: 20040811
  Receipt Date: 20040727
  Transmission Date: 20050211
  Serious: Yes (Hospitalization)
  Sender: FDA-Public Use
  Company Number: 8006545

PATIENT
  Sex: Male

DRUGS (8)
  1. KEPPRA [Suspect]
     Indication: MUSCLE SPASMS
     Dosage: 500 MG 2/D PO
     Route: 048
     Dates: start: 20031001, end: 20040501
  2. LASIX [Concomitant]
  3. ALDACTONE [Concomitant]
  4. ASPIRIN [Concomitant]
  5. POTASSIUM SUPPLEMENT [Concomitant]
  6. FLOMAX [Concomitant]
  7. BUMAX [Concomitant]
  8. ACETAMINOPHEN AND HYDROCODONE BITARTRATE [Concomitant]

REACTIONS (2)
  - ATRIAL FIBRILLATION [None]
  - OEDEMA PERIPHERAL [None]
